FAERS Safety Report 9615335 (Version 1)
Quarter: 2013Q4

REPORT INFORMATION
  Report Type: Spontaneous
  Country: US (occurrence: US)
  Receive Date: 20131011
  Receipt Date: 20131011
  Transmission Date: 20140711
  Serious: No
  Sender: FDA-Public Use
  Company Number: US-PURDUE-USA-2013-0098343

PATIENT
  Age: 40 Year
  Sex: Female

DRUGS (1)
  1. BUTRANS [Suspect]
     Indication: PAIN
     Dosage: 20 MCG, UNK
     Route: 062

REACTIONS (7)
  - Faecaloma [Unknown]
  - Dysuria [Unknown]
  - Loss of bladder sensation [Unknown]
  - Dysarthria [Unknown]
  - Dizziness [Unknown]
  - Constipation [Unknown]
  - Somnolence [Unknown]
